FAERS Safety Report 9832946 (Version 1)
Quarter: 2014Q1

REPORT INFORMATION
  Report Type: Spontaneous
  Country: DE (occurrence: DE)
  Receive Date: 20140121
  Receipt Date: 20140121
  Transmission Date: 20141002
  Serious: Yes (Other)
  Sender: FDA-Public Use
  Company Number: GXKR2014DE000547

PATIENT
  Age: 51 Year
  Sex: Female

DRUGS (1)
  1. METOHEXAL SUCC [Suspect]
     Dosage: 47.5 MG, QD
     Route: 048

REACTIONS (7)
  - Suicidal ideation [Unknown]
  - Eye inflammation [Unknown]
  - Apathy [Unknown]
  - Constipation [Unknown]
  - Depression [Unknown]
  - Arthropathy [Unknown]
  - Suspected counterfeit product [Unknown]
